FAERS Safety Report 14656716 (Version 1)
Quarter: 2018Q1

REPORT INFORMATION
  Report Type: Spontaneous
  Country: US (occurrence: US)
  Receive Date: 20180319
  Receipt Date: 20180319
  Transmission Date: 20180509
  Serious: No
  Sender: FDA-Public Use
  Company Number: US-SA-2017SA020870

PATIENT
  Age: 64 Year
  Sex: Female

DRUGS (2)
  1. TRIAMCINOLONE ACETONIDE. [Suspect]
     Active Substance: TRIAMCINOLONE ACETONIDE
     Indication: TENDONITIS
     Dosage: TOTAL DOSE 20 MG/ML
     Route: 065
  2. TRIAMCINOLONE ACETONIDE. [Suspect]
     Active Substance: TRIAMCINOLONE ACETONIDE
     Indication: TENDONITIS
     Dosage: TOTAL DOSE 40MG/ML
     Route: 065

REACTIONS (6)
  - Vascular fragility [Recovering/Resolving]
  - Telangiectasia [Recovering/Resolving]
  - Injection site extravasation [Recovering/Resolving]
  - Purpura [Recovered/Resolved]
  - Lipoatrophy [Not Recovered/Not Resolved]
  - Injection site atrophy [Recovering/Resolving]
